FAERS Safety Report 23325510 (Version 1)
Quarter: 2023Q4

REPORT INFORMATION
  Report Type: Spontaneous
  Country: US (occurrence: US)
  Receive Date: 20231221
  Receipt Date: 20231221
  Transmission Date: 20240110
  Serious: No
  Sender: FDA-Public Use
  Company Number: US-BIOVITRUM-2023-US-020050

PATIENT
  Age: 17 Month
  Sex: Female
  Weight: 9.43 kg

DRUGS (1)
  1. SYNAGIS [Suspect]
     Active Substance: PALIVIZUMAB
     Indication: Lung disorder
     Dosage: ONCE A MONTH
     Route: 030
     Dates: start: 202211

REACTIONS (1)
  - Illness [Unknown]
